FAERS Safety Report 5690100-0 (Version None)
Quarter: 2008Q1

REPORT INFORMATION
  Report Type: 
  Country: None (occurrence: None)
  Receive Date: 20080331
  Receipt Date: 20080331
  Transmission Date: 20080703
  Serious: Yes (Hospitalization)
  Sender: FDA-Public Use
  Company Number: None

PATIENT
  Age: 83 Year
  Sex: Male
  Weight: 58.9676 kg

DRUGS (1)
  1. ZYRTEC [Suspect]

REACTIONS (3)
  - ASTHENIA [None]
  - MYALGIA [None]
  - SOMNOLENCE [None]
